FAERS Safety Report 4550856-7 (Version None)
Quarter: 2005Q1

REPORT INFORMATION
  Report Type: 
  Country: None (occurrence: None)
  Receive Date: 20050112
  Receipt Date: 20041027
  Transmission Date: 20050727
  Serious: Yes (Hospitalization, Other)
  Sender: FDA-Public Use
  Company Number: TR-MERCK-0410USA04320B1

PATIENT
  Sex: Female
  Weight: 1 kg

DRUGS (6)
  1. COSMEGEN [Suspect]
     Indication: NEPHROBLASTOMA
  2. VINCRISTINE SULFATE [Suspect]
     Indication: NEPHROBLASTOMA
  3. CYCLOPHOSPHAMIDE [Suspect]
  4. IFOSFAMIDE [Suspect]
  5. CARBOPLATIN [Suspect]
  6. ETOPOSIDE [Suspect]

REACTIONS (3)
  - DRUG EXPOSURE DURING PREGNANCY [None]
  - NEONATAL RESPIRATORY DISTRESS SYNDROME [None]
  - PREMATURE BABY [None]
